FAERS Safety Report 16134049 (Version 2)
Quarter: 2019Q2

REPORT INFORMATION
  Report Type: Spontaneous
  Country: US (occurrence: US)
  Receive Date: 20190329
  Receipt Date: 20190412
  Transmission Date: 20190711
  Serious: No
  Sender: FDA-Public Use
  Company Number: US-VERTEX PHARMACEUTICALS-2019-002702

PATIENT
  Age: 3 Year
  Sex: Male

DRUGS (9)
  1. PANCRELIPASE. [Concomitant]
     Active Substance: PANCRELIPASE
  2. HYPERTONIC SALINE SOLUTION [Concomitant]
     Active Substance: SODIUM CHLORIDE
     Route: 055
  3. DORNASE ALFA. [Concomitant]
     Active Substance: DORNASE ALFA
  4. FLUTICASONE. [Concomitant]
     Active Substance: FLUTICASONE
     Route: 055
  5. LANSOPRAZOLE. [Concomitant]
     Active Substance: LANSOPRAZOLE
  6. OFLOXACIN. [Concomitant]
     Active Substance: OFLOXACIN
     Route: 047
  7. ORKAMBI [Suspect]
     Active Substance: IVACAFTOR\LUMACAFTOR
     Indication: CYSTIC FIBROSIS
     Dosage: 1 DOSAGE FORM (150/188 MG), BID
     Route: 048
     Dates: start: 20181003, end: 20190313
  8. ALBUTEROL                          /00139501/ [Concomitant]
     Active Substance: ALBUTEROL
  9. FLUTICASONE. [Concomitant]
     Active Substance: FLUTICASONE
     Dosage: UNK
     Route: 045

REACTIONS (3)
  - Asthenia [Recovered/Resolved]
  - Abnormal behaviour [Recovered/Resolved]
  - Confusional state [Recovered/Resolved]

NARRATIVE: CASE EVENT DATE: 20181017
